FAERS Safety Report 22134584 (Version 2)
Quarter: 2023Q2

REPORT INFORMATION
  Report Type: Spontaneous
  Country: US (occurrence: None)
  Receive Date: 20230324
  Receipt Date: 20230517
  Transmission Date: 20230721
  Serious: Yes (Other)
  Sender: FDA-Public Use
  Company Number: 2023A064805

PATIENT
  Age: 666 Month
  Sex: Female
  Weight: 81.6 kg

DRUGS (1)
  1. BREZTRI [Suspect]
     Active Substance: BUDESONIDE\FORMOTEROL\GLYCOPYRROLATE
     Indication: Chronic obstructive pulmonary disease
     Dosage: 160/9/4.8 MCG, 2 INHALATIONS 2 TIMES A DAY
     Route: 055

REACTIONS (16)
  - Alpha-1 antitrypsin deficiency [Unknown]
  - Pulmonary mass [Unknown]
  - Neoplasm [Unknown]
  - COVID-19 [Unknown]
  - Dyspnoea [Unknown]
  - Mental impairment [Unknown]
  - Sleep disorder due to general medical condition, insomnia type [Unknown]
  - Infection [Unknown]
  - Eye disorder [Unknown]
  - Illness [Unknown]
  - Depression [Unknown]
  - Hypoxia [Unknown]
  - Incorrect dose administered by device [Unknown]
  - Wrong technique in device usage process [Unknown]
  - Device delivery system issue [Unknown]
  - Device use issue [Unknown]

NARRATIVE: CASE EVENT DATE: 20220501
